FAERS Safety Report 8518773-5 (Version None)
Quarter: 2012Q3

REPORT INFORMATION
  Report Type: 
  Country: None (occurrence: None)
  Receive Date: 20120718
  Receipt Date: 20120713
  Transmission Date: 20120928
  Serious: Yes (Hospitalization, Other)
  Sender: FDA-Public Use
  Company Number: PHHY2011CA60376

PATIENT
  Sex: Male

DRUGS (6)
  1. BISOPROLOL FUMARATE [Concomitant]
     Dosage: 1.25 MG (1/4 DF), UNK
  2. METOPROLOL SUCCINATE [Concomitant]
  3. SANDOSTATIN [Suspect]
     Dosage: 50 UG, TID
     Route: 058
     Dates: end: 20110705
  4. SANDOSTATIN [Suspect]
     Indication: CARCINOID TUMOUR
     Dosage: 50 UG, TID
     Route: 058
     Dates: start: 20110623
  5. DICYCLOMINE [Concomitant]
  6. SANDOSTATIN LAR [Suspect]
     Indication: CARCINOID TUMOUR
     Dosage: 30 MG, EVERY 4 WEEKS
     Route: 030
     Dates: start: 20110714

REACTIONS (15)
  - DYSPNOEA [None]
  - BRONCHITIS [None]
  - COUGH [None]
  - CREPITATIONS [None]
  - SUFFOCATION FEELING [None]
  - INFLUENZA [None]
  - BLOOD PRESSURE DIASTOLIC DECREASED [None]
  - RHINORRHOEA [None]
  - ASTHENIA [None]
  - INJECTION SITE PAIN [None]
  - WHEEZING [None]
  - BLOOD PRESSURE SYSTOLIC INCREASED [None]
  - DIARRHOEA [None]
  - BRADYCARDIA [None]
  - ABDOMINAL PAIN [None]
